FAERS Safety Report 17356158 (Version 1)
Quarter: 2020Q1

REPORT INFORMATION
  Report Type: Spontaneous
  Country: US (occurrence: US)
  Receive Date: 20200131
  Receipt Date: 20200131
  Transmission Date: 20200409
  Serious: Yes (Hospitalization)
  Sender: FDA-Public Use
  Company Number: US-AMGEN-USASP2020013326

PATIENT
  Age: 19 Year
  Sex: Female

DRUGS (5)
  1. EPOETIN ALFA [Suspect]
     Active Substance: ERYTHROPOIETIN
     Dosage: 10000 UNIT, 3 TIMES/WK
     Route: 058
  2. EPOETIN ALFA [Suspect]
     Active Substance: ERYTHROPOIETIN
     Indication: AUTOIMMUNE HAEMOLYTIC ANAEMIA
     Dosage: 10000 UNIT, QOD
     Route: 058
  3. RITUXIMAB. [Concomitant]
     Active Substance: RITUXIMAB
     Indication: AUTOIMMUNE HAEMOLYTIC ANAEMIA
     Dosage: 375 MILLIGRAM/SQ. METER, QWK
     Route: 042
  4. HEMOPURE [Concomitant]
     Active Substance: HEMOGLOBIN GLUTAMER-250 (BOVINE)
     Indication: AUTOIMMUNE HAEMOLYTIC ANAEMIA
     Dosage: UNK (2 UNITS (65 GRAMS) AT A RATE OF 0.25 G/MIN OVER 4 HOURS)
  5. METHYLPREDNISOLONE. [Concomitant]
     Active Substance: METHYLPREDNISOLONE
     Indication: AUTOIMMUNE HAEMOLYTIC ANAEMIA
     Dosage: 1 MILLIGRAM/KILOGRAM, QD
     Route: 042

REACTIONS (5)
  - Mental status changes [Recovered/Resolved]
  - Ischaemia [Unknown]
  - Off label use [Unknown]
  - Haemoglobin decreased [Recovering/Resolving]
  - Abdominal pain [Unknown]
